FAERS Safety Report 9112326 (Version 1)
Quarter: 2013Q1

REPORT INFORMATION
  Report Type: Spontaneous
  Country: US (occurrence: US)
  Receive Date: 20130219
  Receipt Date: 20130219
  Transmission Date: 20140127
  Serious: No
  Sender: FDA-Public Use
  Company Number: US-BRISTOL-MYERS SQUIBB COMPANY-16703647

PATIENT
  Age: 41 Year
  Sex: Male

DRUGS (1)
  1. ORENCIA [Suspect]
     Dosage: STOPPED ON NOV OR DEC 2011
     Route: 042
     Dates: end: 2011

REACTIONS (1)
  - Drug ineffective [Unknown]
